FAERS Safety Report 15169489 (Version 3)
Quarter: 2018Q3

REPORT INFORMATION
  Report Type: Spontaneous
  Country: US (occurrence: US)
  Receive Date: 20180720
  Receipt Date: 20180904
  Transmission Date: 20181010
  Serious: No
  Sender: FDA-Public Use
  Company Number: US-BIOGEN-2018BI00609530

PATIENT
  Age: 58 Year
  Sex: Female

DRUGS (2)
  1. AVONEX [Suspect]
     Active Substance: INTERFERON BETA-1A
     Indication: MULTIPLE SCLEROSIS
     Route: 065
     Dates: start: 20050524, end: 20120629
  2. AVONEX [Suspect]
     Active Substance: INTERFERON BETA-1A
     Dosage: STRENGTH 30 MICROGRAM
     Route: 030
     Dates: start: 20180816

REACTIONS (5)
  - Injection site reaction [Not Recovered/Not Resolved]
  - Device difficult to use [Unknown]
  - Anxiety [Unknown]
  - Injury associated with device [Recovered/Resolved]
  - Memory impairment [Not Recovered/Not Resolved]

NARRATIVE: CASE EVENT DATE: 20180806
